FAERS Safety Report 17481030 (Version 1)
Quarter: 2020Q1

REPORT INFORMATION
  Report Type: Spontaneous
  Country: FR (occurrence: FR)
  Receive Date: 20200302
  Receipt Date: 20200302
  Transmission Date: 20200409
  Serious: Yes (Death, Other)
  Sender: FDA-Public Use
  Company Number: FR-LUPIN PHARMACEUTICALS INC.-2020-00948

PATIENT
  Age: 72 Year
  Sex: Male

DRUGS (1)
  1. VORICONAZOLE. [Suspect]
     Active Substance: VORICONAZOLE
     Indication: OTITIS EXTERNA FUNGAL
     Dosage: UNK
     Route: 065

REACTIONS (2)
  - Cerebral infarction [Fatal]
  - Drug ineffective [Fatal]
